FAERS Safety Report 9188079 (Version 3)
Quarter: 2013Q2

REPORT INFORMATION
  Report Type: Spontaneous
  Country: DE (occurrence: JP)
  Receive Date: 20130325
  Receipt Date: 20130405
  Transmission Date: 20140414
  Serious: Yes (Hospitalization)
  Sender: FDA-Public Use
  Company Number: DE-ACTELION-A-US2013-80957

PATIENT
  Age: 40 Year
  Sex: Female
  Weight: 83.9 kg

DRUGS (3)
  1. VENTAVIS BAYER SCHERING [Suspect]
     Indication: PULMONARY ARTERIAL HYPERTENSION
     Dosage: 5 MCG, UNK
     Route: 055
     Dates: start: 20121226, end: 20130313
  2. VENTAVIS BAYER SCHERING [Suspect]
     Dosage: 2.5 MCG, UNK
     Route: 055
     Dates: start: 20121226, end: 20121226
  3. BAKUMONDOTO [Concomitant]

REACTIONS (1)
  - Myocardial infarction [Recovered/Resolved]
